FAERS Safety Report 13072578 (Version 1)
Quarter: 2016Q4

REPORT INFORMATION
  Report Type: Spontaneous
  Country: US (occurrence: US)
  Receive Date: 20161229
  Receipt Date: 20161229
  Transmission Date: 20170207
  Serious: No
  Sender: FDA-Public Use
  Company Number: US-SA-2016SA164129

PATIENT
  Age: 56 Year
  Sex: Female
  Weight: 57.61 kg

DRUGS (1)
  1. TAXOTERE [Suspect]
     Active Substance: DOCETAXEL
     Route: 065

REACTIONS (3)
  - Swelling [Unknown]
  - Mobility decreased [Unknown]
  - Speech disorder [Unknown]
